FAERS Safety Report 24245298 (Version 1)
Quarter: 2024Q3

REPORT INFORMATION
  Report Type: Report from Study
  Country: US (occurrence: None)
  Receive Date: 20240824
  Receipt Date: 20240824
  Transmission Date: 20241016
  Serious: Yes (Other)
  Sender: ASTRAZENECA
  Company Number: 2024A187786

PATIENT
  Sex: Female

DRUGS (1)
  1. CALQUENCE [Suspect]
     Active Substance: ACALABRUTINIB
     Indication: Chronic lymphocytic leukaemia
     Route: 048
     Dates: start: 20240808

REACTIONS (8)
  - White blood cell count abnormal [Unknown]
  - Fatigue [Unknown]
  - Dizziness [Recovering/Resolving]
  - Urinary tract infection [Unknown]
  - Dehydration [Unknown]
  - Diarrhoea [Unknown]
  - Dyspepsia [Unknown]
  - Decreased activity [Unknown]
